FAERS Safety Report 6083799 (Version 15)
Quarter: 2013Q2

REPORT INFORMATION
  Report Type: Spontaneous
  Country: US (occurrence: US)
  Receive Date: 20060718
  Receipt Date: 20130403
  Transmission Date: 20140414
  Serious: Yes (Death, Other)
  Sender: FDA-Public Use
  Company Number: PHEH2006US08869

PATIENT
  Age: 62 Year
  Sex: Female

DRUGS (13)
  1. AREDIA [Suspect]
  2. ZOMETA [Suspect]
  3. ROXANOL [Concomitant]
  4. LORAZEPAM [Concomitant]
  5. LYRICA [Concomitant]
  6. TYLENOL [Concomitant]
  7. DIGOXIN [Concomitant]
  8. SYNTHROID [Concomitant]
  9. TOPROL XL [Concomitant]
  10. NEXIUM [Concomitant]
  11. COLACE [Concomitant]
  12. MIRALAX [Concomitant]
  13. SENNA [Concomitant]

REACTIONS (47)
  - Death [Fatal]
  - Beta 2 microglobulin increased [Unknown]
  - Intervertebral disc degeneration [Unknown]
  - Deep vein thrombosis [Unknown]
  - Osteonecrosis of jaw [Unknown]
  - Gingival ulceration [Unknown]
  - Bone disorder [Unknown]
  - Pain [Unknown]
  - Anxiety [Unknown]
  - General physical health deterioration [Unknown]
  - Decreased interest [Unknown]
  - Loose tooth [Unknown]
  - Sinusitis [Unknown]
  - Arrhythmia [Unknown]
  - Renal failure chronic [Unknown]
  - Osteoarthritis [Unknown]
  - Bone lesion [Unknown]
  - Intervertebral disc space narrowing [Unknown]
  - Osteosclerosis [Unknown]
  - Periodontitis [Unknown]
  - Breath odour [Unknown]
  - Sensitivity of teeth [Unknown]
  - Cholelithiasis [Unknown]
  - Pleural effusion [Unknown]
  - Pericardial effusion [Unknown]
  - Osteopenia [Unknown]
  - Atelectasis [Unknown]
  - Thrombocytopenia [Unknown]
  - Cardiomegaly [Unknown]
  - Atrial fibrillation [Unknown]
  - Hypertension [Unknown]
  - Osteolysis [Unknown]
  - Bone erosion [Unknown]
  - Metastases to bone [Unknown]
  - Excessive granulation tissue [Unknown]
  - Inflammation [Unknown]
  - Primary sequestrum [Unknown]
  - Thyroid disorder [Unknown]
  - Retroperitoneal haemorrhage [Unknown]
  - Visual impairment [Unknown]
  - Gastrooesophageal reflux disease [Unknown]
  - Weight fluctuation [Unknown]
  - Atrophy [Unknown]
  - Scar [Unknown]
  - Swelling [Unknown]
  - Haematoma [Unknown]
  - Anaemia [Unknown]
